FAERS Safety Report 15045047 (Version 1)
Quarter: 2018Q2

REPORT INFORMATION
  Report Type: Spontaneous
  Country: GB (occurrence: GB)
  Receive Date: 20180621
  Receipt Date: 20180621
  Transmission Date: 20180711
  Serious: Yes (Hospitalization, Other)
  Sender: FDA-Public Use
  Company Number: GB-MYLANLABS-2018M1045894

PATIENT
  Age: 22 Year
  Sex: Male

DRUGS (1)
  1. VALPROIC ACID. [Suspect]
     Active Substance: VALPROIC ACID
     Indication: GENERALISED TONIC-CLONIC SEIZURE

REACTIONS (11)
  - Nausea [Unknown]
  - Hyperammonaemia [Unknown]
  - Condition aggravated [Unknown]
  - Hepatic enzyme abnormal [Unknown]
  - Alanine aminotransferase increased [Unknown]
  - Vomiting [Unknown]
  - Confusional state [Unknown]
  - Aggression [Unknown]
  - Encephalopathy [Unknown]
  - White blood cell count increased [Unknown]
  - Ammonia increased [Unknown]
